FAERS Safety Report 9314199 (Version 2)
Quarter: 2013Q2

REPORT INFORMATION
  Report Type: Spontaneous
  Country: BR (occurrence: BR)
  Receive Date: 20130529
  Receipt Date: 20130604
  Transmission Date: 20140414
  Serious: Yes (Death, Hospitalization, Other)
  Sender: FDA-Public Use
  Company Number: BR-PFIZER INC-2012206226

PATIENT
  Age: 63 Year
  Sex: Female
  Weight: 55 kg

DRUGS (6)
  1. SUTENT [Suspect]
     Indication: RENAL CELL CARCINOMA
     Dosage: 50 MG, ONCE DAILY FOLLOWING A 4/2 SCHEDULE (4 WEEKS ON/2 WEEKS OFF)
     Route: 048
     Dates: start: 20120815, end: 2013
  2. TYLEX [Concomitant]
     Dosage: UNK
  3. LISADOR [Concomitant]
     Dosage: UNK
  4. PANTOPRAZOL [Concomitant]
  5. DRAMIN [Concomitant]
  6. MYTEDOM [Concomitant]

REACTIONS (31)
  - Multi-organ failure [Fatal]
  - Disease progression [Fatal]
  - Renal cell carcinoma [Fatal]
  - Blood pressure increased [Unknown]
  - Asthenia [Unknown]
  - Feeling abnormal [Unknown]
  - Renal failure [Not Recovered/Not Resolved]
  - Hypersensitivity [Unknown]
  - Burning sensation [Unknown]
  - Malaise [Unknown]
  - Swelling face [Not Recovered/Not Resolved]
  - Back pain [Unknown]
  - Flatulence [Unknown]
  - Glossodynia [Unknown]
  - Abdominal pain [Not Recovered/Not Resolved]
  - Oral pain [Unknown]
  - Vomiting [Unknown]
  - Alopecia [Recovered/Resolved]
  - Epistaxis [Not Recovered/Not Resolved]
  - Dizziness [Not Recovered/Not Resolved]
  - Abdominal pain upper [Not Recovered/Not Resolved]
  - Vomiting [Not Recovered/Not Resolved]
  - Dysgeusia [Not Recovered/Not Resolved]
  - Erythema [Unknown]
  - Dyspepsia [Unknown]
  - Weight decreased [Not Recovered/Not Resolved]
  - Nausea [Recovered/Resolved]
  - Cough [Recovered/Resolved]
  - Skin exfoliation [Recovered/Resolved]
  - Pain [Unknown]
  - Gallbladder disorder [Recovered/Resolved]
